FAERS Safety Report 7343403-8 (Version None)
Quarter: 2011Q1

REPORT INFORMATION
  Report Type: 
  Country: None (occurrence: None)
  Receive Date: 20110308
  Receipt Date: 20110308
  Transmission Date: 20110831
  Serious: Yes (Other)
  Sender: FDA-Public Use
  Company Number: None

PATIENT
  Sex: Female
  Weight: 90.7194 kg

DRUGS (1)
  1. CYMBALTA [Suspect]

REACTIONS (5)
  - NAUSEA [None]
  - IMPAIRED WORK ABILITY [None]
  - HEADACHE [None]
  - MALAISE [None]
  - DIZZINESS [None]
